FAERS Safety Report 17323011 (Version 1)
Quarter: 2020Q1

REPORT INFORMATION
  Report Type: Report from Study
  Country: CN (occurrence: CN)
  Receive Date: 20200127
  Receipt Date: 20200127
  Transmission Date: 20200409
  Serious: Yes (Other)
  Sender: FDA-Public Use
  Company Number: CN-ROCHE-2528464

PATIENT
  Sex: Female

DRUGS (2)
  1. MIFEPRISTONE [Suspect]
     Active Substance: MIFEPRISTONE
     Indication: OVARIAN CANCER
     Dosage: AT 9 AM AND 8 PM ONE DAY BEFORE THE OPERATION
     Route: 048
  2. BEVACIZUMAB. [Suspect]
     Active Substance: BEVACIZUMAB
     Indication: OVARIAN CANCER
     Dosage: ADDED TO 300 ML 0.9% SODIUM CHLORIDE INJECTION
     Route: 042

REACTIONS (3)
  - Arrhythmia [Unknown]
  - Postpartum haemorrhage [Unknown]
  - Maternal exposure during pregnancy [Unknown]
